FAERS Safety Report 14921750 (Version 1)
Quarter: 2018Q2

REPORT INFORMATION
  Report Type: Spontaneous
  Country: JP (occurrence: JP)
  Receive Date: 20180522
  Receipt Date: 20180522
  Transmission Date: 20180711
  Serious: Yes (Death)
  Sender: FDA-Public Use
  Company Number: JP-BAXTER-2018BAX014662

PATIENT
  Sex: Female
  Weight: 54 kg

DRUGS (1)
  1. SUPRANE [Suspect]
     Active Substance: DESFLURANE
     Indication: MAINTENANCE OF ANAESTHESIA
     Dosage: ADMINISTRATION RATE: 5%
     Route: 055
     Dates: start: 20180322, end: 20180322

REACTIONS (1)
  - Hepatitis fulminant [Fatal]
